FAERS Safety Report 16569271 (Version 1)
Quarter: 2019Q3

REPORT INFORMATION
  Report Type: Spontaneous
  Country: CL (occurrence: CL)
  Receive Date: 20190714
  Receipt Date: 20190714
  Transmission Date: 20191004
  Serious: No
  Sender: FDA-Public Use
  Company Number: CL-BEH-2019104109

PATIENT

DRUGS (2)
  1. BERINERT [Suspect]
     Active Substance: HUMAN C1-ESTERASE INHIBITOR
     Indication: HEREDITARY ANGIOEDEMA
     Route: 065
  2. BERINERT [Suspect]
     Active Substance: HUMAN C1-ESTERASE INHIBITOR
     Indication: HEREDITARY ANGIOEDEMA
     Route: 065

REACTIONS (3)
  - Product preparation issue [Unknown]
  - Device issue [Unknown]
  - No adverse event [Unknown]
